FAERS Safety Report 11321656 (Version 4)
Quarter: 2015Q3

REPORT INFORMATION
  Report Type: Spontaneous
  Country: US (occurrence: US)
  Receive Date: 20150729
  Receipt Date: 20150928
  Transmission Date: 20151125
  Serious: Yes (Other)
  Sender: FDA-Public Use
  Company Number: US-GLAXOSMITHKLINE-US2015107927

PATIENT
  Sex: Female

DRUGS (5)
  1. ADVAIR DISKUS [Suspect]
     Active Substance: FLUTICASONE PROPIONATE\SALMETEROL XINAFOATE
     Indication: ASTHMA
     Dosage: 1 PUFF(S), BID
     Route: 055
  2. CLARITIN [Concomitant]
     Active Substance: LORATADINE
  3. SINGULAIR [Concomitant]
     Active Substance: MONTELUKAST SODIUM
  4. CALCIUM [Concomitant]
     Active Substance: CALCIUM
  5. ADVAIR DISKUS [Suspect]
     Active Substance: FLUTICASONE PROPIONATE\SALMETEROL XINAFOATE
     Dosage: 1 PUFF(S), BID
     Route: 055

REACTIONS (6)
  - General physical health deterioration [Not Recovered/Not Resolved]
  - Hypoacusis [Unknown]
  - Memory impairment [Recovering/Resolving]
  - Tremor [Not Recovered/Not Resolved]
  - Asthenia [Unknown]
  - Dementia [Unknown]
